FAERS Safety Report 23002020 (Version 2)
Quarter: 2023Q4

REPORT INFORMATION
  Report Type: Spontaneous
  Country: US (occurrence: US)
  Receive Date: 20230928
  Receipt Date: 20231009
  Transmission Date: 20240109
  Serious: Yes (Hospitalization)
  Sender: FDA-Public Use
  Company Number: US-TEVA-2023-US-2928669

PATIENT
  Age: 8 Decade
  Sex: Female

DRUGS (1)
  1. AMIODARONE HYDROCHLORIDE [Suspect]
     Active Substance: AMIODARONE HYDROCHLORIDE
     Indication: Atrial fibrillation
     Dosage: 200 MILLIGRAM DAILY; ONCE A DAY
     Route: 065

REACTIONS (7)
  - Goitre [Recovered/Resolved]
  - Jugular vein distension [Unknown]
  - Superficial vein prominence [Unknown]
  - Angiopathy [Unknown]
  - Superior vena cava syndrome [Unknown]
  - Tracheal compression [Unknown]
  - Eczema nummular [Unknown]
